FAERS Safety Report 5506552-2 (Version None)
Quarter: 2007Q4

REPORT INFORMATION
  Report Type: 
  Country: None (occurrence: None)
  Receive Date: 20071105
  Receipt Date: 20071031
  Transmission Date: 20080405
  Serious: Yes (Other)
  Sender: FDA-Public Use
  Company Number: B0493506A

PATIENT
  Age: 66 Year
  Sex: Male

DRUGS (7)
  1. ROPINIROLE HCL [Suspect]
     Indication: PARKINSON'S DISEASE
     Dosage: 9MG PER DAY
     Route: 048
     Dates: start: 20050101, end: 20070901
  2. ATENOLOL [Concomitant]
     Route: 048
  3. NIFEDIPINE [Concomitant]
     Route: 065
  4. SIMVASTATIN [Concomitant]
     Indication: BLOOD CHOLESTEROL INCREASED
     Route: 048
  5. ASPIRIN [Concomitant]
     Route: 048
  6. MIRTAZAPINE [Concomitant]
     Indication: DEPRESSION
     Route: 048
     Dates: end: 20070601
  7. RAMIPRIL [Concomitant]
     Dosage: 10MG PER DAY
     Route: 065

REACTIONS (1)
  - INTENTIONAL SELF-INJURY [None]
